FAERS Safety Report 23033743 (Version 1)
Quarter: 2023Q4

REPORT INFORMATION
  Report Type: Spontaneous
  Country: US (occurrence: US)
  Receive Date: 20231005
  Receipt Date: 20231005
  Transmission Date: 20240110
  Serious: Yes (Death, Life-Threatening, Hospitalization, Other)
  Sender: FDA-Public Use
  Company Number: US-PFIZER INC-PV202300165440

PATIENT
  Age: 30 Year
  Sex: Male

DRUGS (6)
  1. BLEOMYCIN SULFATE [Suspect]
     Active Substance: BLEOMYCIN SULFATE
     Indication: Testicular cancer metastatic
     Dosage: UNK, CYCLIC (FOUR COURSES)
  2. BLEOMYCIN SULFATE [Suspect]
     Active Substance: BLEOMYCIN SULFATE
     Indication: Germ cell cancer
  3. CISPLATIN [Concomitant]
     Active Substance: CISPLATIN
     Indication: Testicular cancer metastatic
     Dosage: UNK, CYCLIC (FOUR COURSES)
  4. CISPLATIN [Concomitant]
     Active Substance: CISPLATIN
     Indication: Germ cell cancer
  5. ETOPOSIDE [Concomitant]
     Active Substance: ETOPOSIDE
     Indication: Testicular cancer metastatic
     Dosage: UNK, CYCLIC (FOUR COURSES)
  6. ETOPOSIDE [Concomitant]
     Active Substance: ETOPOSIDE
     Indication: Germ cell cancer

REACTIONS (1)
  - Pneumonitis [Fatal]
